FAERS Safety Report 14648565 (Version 2)
Quarter: 2018Q1

REPORT INFORMATION
  Report Type: Spontaneous
  Country: FR (occurrence: FR)
  Receive Date: 20180316
  Receipt Date: 20180327
  Transmission Date: 20180509
  Serious: Yes (Hospitalization, Other)
  Sender: FDA-Public Use
  Company Number: FR-AUROBINDO-AUR-APL-2018-014537

PATIENT
  Age: 30 Year
  Sex: Female
  Weight: 110 kg

DRUGS (17)
  1. LEVOCETIRIZINE [Suspect]
     Active Substance: LEVOCETIRIZINE
     Indication: RASH PRURITIC
  2. MORPHINE [Suspect]
     Active Substance: MORPHINE
     Indication: PROCEDURAL PAIN
     Route: 042
     Dates: start: 20171031, end: 20171101
  3. POLARAMINE [Suspect]
     Active Substance: DEXCHLORPHENIRAMINE MALEATE
     Indication: RASH PRURITIC
     Dosage: 1 DF, UNK
     Route: 042
     Dates: start: 20171102, end: 20171102
  4. PARACETAMOL SOLUTION FOR INFUSION [Suspect]
     Active Substance: ACETAMINOPHEN
     Indication: PROCEDURAL PAIN
     Dosage: 1 DOSAGE FORM
     Route: 042
     Dates: start: 20171031, end: 20171101
  5. LOVENOX [Suspect]
     Active Substance: ENOXAPARIN SODIUM
     Indication: THROMBOSIS PROPHYLAXIS
     Dosage: 8000 IU, QD
     Route: 042
     Dates: start: 20171031, end: 20171101
  6. LEVOCETIRIZINE [Suspect]
     Active Substance: LEVOCETIRIZINE
     Indication: RASH PRURITIC
     Dosage: 5 MG, UNK
     Route: 048
     Dates: start: 20171101, end: 20171101
  7. POLARAMINE [Suspect]
     Active Substance: DEXCHLORPHENIRAMINE MALEATE
     Route: 042
  8. BRIDION [Suspect]
     Active Substance: SUGAMMADEX
     Indication: NEUROMUSCULAR BLOCKADE REVERSAL
     Route: 042
     Dates: start: 20171031, end: 20171102
  9. METRONIDAZOLE. [Suspect]
     Active Substance: METRONIDAZOLE
     Dosage: 500 MG
     Route: 042
  10. LEXOMIL [Suspect]
     Active Substance: BROMAZEPAM
     Indication: ANXIETY
     Dosage: 3 MG
     Route: 048
  11. DROPERIDOL. [Suspect]
     Active Substance: DROPERIDOL
     Indication: AGITATION
     Dosage: 1.25 MG, UNK
     Route: 042
     Dates: start: 20171031, end: 20171102
  12. DROPERIDOL. [Suspect]
     Active Substance: DROPERIDOL
     Dosage: 1.25 MG
     Route: 042
  13. DAFALGAN CODEINE [Suspect]
     Active Substance: ACETAMINOPHEN\CODEINE PHOSPHATE
     Indication: PAIN
     Dosage: 1 DF, QID
     Route: 048
     Dates: start: 20171101, end: 20171101
  14. METRONIDAZOLE. [Suspect]
     Active Substance: METRONIDAZOLE
     Indication: ANTIBIOTIC PROPHYLAXIS
     Dosage: 500 MG, UNK
     Route: 042
     Dates: start: 20171101, end: 20171101
  15. GENTAMICINE                        /00047101/ [Suspect]
     Active Substance: GENTAMICIN
     Indication: ANTIBIOTIC PROPHYLAXIS
     Dosage: 3.2 GRAM
     Route: 042
     Dates: start: 20171101, end: 20171101
  16. BRIDION [Suspect]
     Active Substance: SUGAMMADEX
     Dosage: 200 MG
     Route: 042
  17. LEXOMIL [Suspect]
     Active Substance: BROMAZEPAM
     Indication: ANXIETY
     Dosage: 3 MG, UNK
     Route: 048
     Dates: start: 20171101, end: 20171101

REACTIONS (1)
  - Drug reaction with eosinophilia and systemic symptoms [Recovered/Resolved]

NARRATIVE: CASE EVENT DATE: 20171031
